FAERS Safety Report 9401162 (Version 4)
Quarter: 2015Q4

REPORT INFORMATION
  Report Type: Spontaneous
  Country: US (occurrence: US)
  Receive Date: 20130715
  Receipt Date: 20151201
  Transmission Date: 20160305
  Serious: Yes (Hospitalization, Other)
  Sender: FDA-Public Use
  Company Number: US-ASTRAZENECA-2013SE51050

PATIENT
  Age: 32 Year
  Sex: Female

DRUGS (27)
  1. SEROQUEL [Suspect]
     Active Substance: QUETIAPINE FUMARATE
     Indication: BIPOLAR DISORDER
     Route: 048
     Dates: start: 20121221, end: 20130104
  2. SEROQUEL [Suspect]
     Active Substance: QUETIAPINE FUMARATE
     Indication: BIPOLAR DISORDER
     Route: 048
     Dates: start: 20130118, end: 20130201
  3. SEROQUEL [Suspect]
     Active Substance: QUETIAPINE FUMARATE
     Indication: BIPOLAR DISORDER
     Route: 048
     Dates: start: 20130301, end: 20130331
  4. SEROQUEL [Suspect]
     Active Substance: QUETIAPINE FUMARATE
     Indication: BIPOLAR DISORDER
     Route: 048
     Dates: start: 20130620, end: 20130624
  5. IBUPROFEN. [Concomitant]
     Active Substance: IBUPROFEN
  6. SEROQUEL [Suspect]
     Active Substance: QUETIAPINE FUMARATE
     Indication: BIPOLAR DISORDER
     Route: 048
     Dates: start: 20130624
  7. SEROQUEL [Suspect]
     Active Substance: QUETIAPINE FUMARATE
     Indication: BIPOLAR DISORDER
     Dosage: THREE TIMES DAILY
     Route: 048
  8. SEROQUEL [Suspect]
     Active Substance: QUETIAPINE FUMARATE
     Indication: BIPOLAR DISORDER
     Route: 048
     Dates: start: 20121105, end: 20121205
  9. SEROQUEL [Suspect]
     Active Substance: QUETIAPINE FUMARATE
     Indication: BIPOLAR DISORDER
     Dosage: 200MG IN AM 600MG AT NIGHT 200MG AT NOON
     Route: 048
  10. SEROQUEL [Suspect]
     Active Substance: QUETIAPINE FUMARATE
     Indication: BIPOLAR DISORDER
     Route: 048
     Dates: start: 20130103, end: 20130117
  11. SEROQUEL [Suspect]
     Active Substance: QUETIAPINE FUMARATE
     Indication: BIPOLAR DISORDER
     Dosage: 1 TABLET 4X PER DAY, TAKING TOTAL OF 800MG PER DAY
     Route: 048
  12. VALIUM [Concomitant]
     Active Substance: DIAZEPAM
  13. TRAMADOL. [Concomitant]
     Active Substance: TRAMADOL
     Indication: PAIN
  14. VITAMIN D [Concomitant]
     Active Substance: CHOLECALCIFEROL
  15. SEROQUEL [Suspect]
     Active Substance: QUETIAPINE FUMARATE
     Indication: BIPOLAR DISORDER
     Route: 048
     Dates: start: 20130221, end: 20130323
  16. SEROQUEL [Suspect]
     Active Substance: QUETIAPINE FUMARATE
     Indication: BIPOLAR DISORDER
     Route: 048
     Dates: start: 20130516, end: 20130615
  17. SEROQUEL [Suspect]
     Active Substance: QUETIAPINE FUMARATE
     Indication: BIPOLAR DISORDER
     Route: 048
  18. DEPAKOTE [Concomitant]
     Active Substance: DIVALPROEX SODIUM
     Indication: SEIZURE
  19. CELEBREX [Concomitant]
     Active Substance: CELECOXIB
  20. CODEINE [Concomitant]
     Active Substance: CODEINE
  21. SEROQUEL [Suspect]
     Active Substance: QUETIAPINE FUMARATE
     Indication: BIPOLAR DISORDER
     Route: 048
     Dates: start: 20120201, end: 20120302
  22. SEROQUEL [Suspect]
     Active Substance: QUETIAPINE FUMARATE
     Indication: BIPOLAR DISORDER
     Route: 048
     Dates: start: 20130320, end: 20130419
  23. HYDROCODONE [Concomitant]
     Active Substance: HYDROCODONE
     Indication: PAIN
  24. SINGULAIR [Concomitant]
     Active Substance: MONTELUKAST SODIUM
  25. SEROQUEL [Suspect]
     Active Substance: QUETIAPINE FUMARATE
     Indication: BIPOLAR DISORDER
     Route: 048
     Dates: start: 1996
  26. SEROQUEL [Suspect]
     Active Substance: QUETIAPINE FUMARATE
     Indication: BIPOLAR DISORDER
     Route: 048
     Dates: start: 20121023, end: 20121106
  27. ZYPREXA [Suspect]
     Active Substance: OLANZAPINE
     Route: 065

REACTIONS (21)
  - Seizure [Unknown]
  - Off label use [Unknown]
  - Cardiac disorder [Unknown]
  - Visual impairment [Unknown]
  - Peripheral swelling [Unknown]
  - Vomiting [Unknown]
  - Erythema [Unknown]
  - Feeling drunk [Unknown]
  - Intentional product misuse [Unknown]
  - Petit mal epilepsy [Unknown]
  - Metabolic syndrome [Unknown]
  - Dry mouth [Unknown]
  - Tremor [Unknown]
  - Glucose tolerance impaired [Unknown]
  - Mania [Unknown]
  - Weight increased [Not Recovered/Not Resolved]
  - Generalised tonic-clonic seizure [Unknown]
  - Intentional product use issue [Unknown]
  - Clostridium difficile infection [Unknown]
  - Hangover [Unknown]
  - Bipolar I disorder [Unknown]

NARRATIVE: CASE EVENT DATE: 1996
